FAERS Safety Report 6871214-6 (Version None)
Quarter: 2010Q3

REPORT INFORMATION
  Report Type: 
  Country: None (occurrence: None)
  Receive Date: 20100723
  Receipt Date: 20100712
  Transmission Date: 20110219
  Serious: Yes (Hospitalization, Other)
  Sender: FDA-Public Use
  Company Number: US-PFIZER INC-2010047782

PATIENT
  Sex: Male

DRUGS (1)
  1. CHANTIX [Suspect]
     Indication: SMOKING CESSATION THERAPY
     Dosage: UNK
     Dates: start: 20070508, end: 20070815

REACTIONS (9)
  - AFFECT LABILITY [None]
  - AGITATION [None]
  - ANGER [None]
  - IMPULSIVE BEHAVIOUR [None]
  - MANIA [None]
  - MENTAL DISORDER [None]
  - SUICIDE ATTEMPT [None]
  - TACHYPHRENIA [None]
  - THINKING ABNORMAL [None]
